FAERS Safety Report 24622314 (Version 3)
Quarter: 2024Q4

REPORT INFORMATION
  Report Type: Spontaneous
  Country: NL (occurrence: NL)
  Receive Date: 20241114
  Receipt Date: 20241223
  Transmission Date: 20250115
  Serious: Yes (Hospitalization)
  Sender: ACCORD
  Company Number: NL-Accord-455711

PATIENT
  Age: 60 Year
  Sex: Female
  Weight: 75.0 kg

DRUGS (17)
  1. CISPLATIN [Suspect]
     Active Substance: CISPLATIN
     Indication: Small cell lung cancer
     Dosage: Q3W; IV DRIP
     Route: 042
     Dates: start: 20240902
  2. ETOPOSIDE [Concomitant]
     Active Substance: ETOPOSIDE
     Indication: Small cell lung cancer
     Dosage: FROM DAY 1 TO DAY 3 OF EACH CYCLE
     Dates: start: 20240902
  3. PAROXETINE [Concomitant]
     Active Substance: PAROXETINE
     Indication: Anxiety
     Dosage: 30 MG,  ONCE DAILY (QD)
     Route: 048
     Dates: start: 1995
  4. ACETAMINOPHEN [Concomitant]
     Active Substance: ACETAMINOPHEN
     Indication: Pain
     Dosage: 1000 MG, AS NEEDED
     Route: 048
     Dates: start: 2022
  5. LEVOTHYROXINE SODIUM [Concomitant]
     Active Substance: LEVOTHYROXINE SODIUM
     Indication: Hyperthyroidism
     Dosage: 75 UG, QD
     Route: 048
     Dates: start: 2019
  6. ATORVASTATIN [Concomitant]
     Active Substance: ATORVASTATIN
     Indication: Hypercholesterolaemia
     Dosage: 20 MG, QD
     Route: 048
     Dates: start: 202404
  7. CALCIUM\CHOLECALCIFEROL [Concomitant]
     Active Substance: CALCIUM\CHOLECALCIFEROL
     Indication: Osteoporosis
     Dosage: 500 MG/800 IU, QD
     Route: 048
     Dates: start: 2020
  8. DEXAMETHASONE [Concomitant]
     Active Substance: DEXAMETHASONE
     Indication: Chemotherapy
     Dosage: 12/8/8/8 MG, DAY?1,2,3,4 OF EVERY CYCLE
     Route: 048
     Dates: start: 20240902
  9. NETUPITANT\PALONOSETRON HYDROCHLORIDE [Concomitant]
     Active Substance: NETUPITANT\PALONOSETRON HYDROCHLORIDE
     Indication: Chemotherapy
     Dosage: 300/0.5 MG, EVERY 21 DAYS?DAY 1
     Route: 048
     Dates: start: 20240902
  10. METOCLOPRAMIDE [Concomitant]
     Active Substance: METOCLOPRAMIDE
     Indication: Nausea
     Dosage: 10 MG, AS NEEDED
     Route: 048
     Dates: start: 20240902
  11. POLYETHYLENE GLYCOLS [Concomitant]
     Active Substance: POLYETHYLENE GLYCOLS
     Indication: Constipation
     Dosage: 10 G, AS NEEDED
     Route: 048
     Dates: start: 20240904
  12. PANTOPRAZOLE [Concomitant]
     Active Substance: PANTOPRAZOLE
     Indication: Radiation oesophagitis
     Dosage: 40 MG, TWICE DAILY?(BID)
     Route: 048
     Dates: start: 20240930
  13. SUCRALFATE [Concomitant]
     Active Substance: SUCRALFATE
     Indication: Radiation oesophagitis
     Dosage: 1 G, FOUR TIMES DAILY (QID)
     Route: 048
     Dates: start: 20240930
  14. FENTANYL [Concomitant]
     Active Substance: FENTANYL
     Indication: Radiation oesophagitis
     Dosage: 25 UG/HOUR, ONE BAND IN THREE DAYS
     Route: 062
     Dates: start: 20241011
  15. DOXYCYCLINE [Concomitant]
     Active Substance: DOXYCYCLINE
     Indication: Infection
     Dosage: 100 MG, QD
     Route: 048
     Dates: start: 20241014, end: 20241021
  16. CODEINE [Concomitant]
     Active Substance: CODEINE
     Indication: Cough
     Dosage: 10 MG, AS NEEDED
     Route: 048
     Dates: start: 20241014
  17. OXYCODONE HYDROCHLORIDE [Concomitant]
     Active Substance: OXYCODONE HYDROCHLORIDE
     Dosage: SHORT-ACTING, 5 MG, AS NEEDED
     Route: 048
     Dates: start: 20240923

REACTIONS (6)
  - Arthralgia [Recovered/Resolved]
  - Abdominal pain [Recovered/Resolved]
  - Hyponatraemia [Recovered/Resolved]
  - Constipation [Not Recovered/Not Resolved]
  - Radiation oesophagitis [Not Recovered/Not Resolved]
  - Condition aggravated [Not Recovered/Not Resolved]

NARRATIVE: CASE EVENT DATE: 20240904
